FAERS Safety Report 7510941-4 (Version None)
Quarter: 2011Q2

REPORT INFORMATION
  Report Type: 
  Country: None (occurrence: None)
  Receive Date: 20110531
  Receipt Date: 20110525
  Transmission Date: 20111010
  Serious: Yes (Hospitalization)
  Sender: FDA-Public Use
  Company Number: CA-BRISTOL-MYERS SQUIBB COMPANY-13950837

PATIENT
  Age: 30 Year
  Sex: Female

DRUGS (14)
  1. AXERT [Concomitant]
     Indication: MIGRAINE
  2. METOPROLOL TARTRATE [Concomitant]
  3. IMOVANE [Concomitant]
  4. CALCIUM CARBONATE [Concomitant]
  5. VITAMIN D [Concomitant]
  6. TYLENOL NO 1 [Concomitant]
  7. GRAVOL TAB [Concomitant]
  8. ORENCIA [Suspect]
     Indication: RHEUMATOID ARTHRITIS
     Dosage: 52;16OT,12JN,9JL,3AG,6S,1OT07,24JA08,21F,20MR,18AP,19MY,13JN,11JL,15AUG,12SEP,7OCT,4N,25NV08,25NV10
     Route: 042
     Dates: start: 20061018
  9. OXYCONTIN [Concomitant]
  10. OXYCET [Concomitant]
  11. IMODIUM [Concomitant]
     Indication: MIGRAINE
  12. RABEPRAZOLE SODIUM [Concomitant]
     Indication: MIGRAINE
  13. ORENCIA [Suspect]
     Indication: JUVENILE ARTHRITIS
     Dosage: 52;16OT,12JN,9JL,3AG,6S,1OT07,24JA08,21F,20MR,18AP,19MY,13JN,11JL,15AUG,12SEP,7OCT,4N,25NV08,25NV10
     Route: 042
     Dates: start: 20061018
  14. PREDNISONE [Concomitant]

REACTIONS (13)
  - INFECTION [None]
  - UROSEPSIS [None]
  - MALAISE [None]
  - VOMITING [None]
  - DYSGEUSIA [None]
  - DIARRHOEA [None]
  - DEHYDRATION [None]
  - HYPOTENSION [None]
  - ABDOMINAL DISCOMFORT [None]
  - PAIN [None]
  - ANAEMIA [None]
  - ARTHRALGIA [None]
  - NAUSEA [None]
